FAERS Safety Report 22095602 (Version 1)
Quarter: 2023Q1

REPORT INFORMATION
  Report Type: Spontaneous
  Country: US (occurrence: US)
  Receive Date: 20230314
  Receipt Date: 20230314
  Transmission Date: 20230418
  Serious: Yes (Hospitalization, Other)
  Sender: FDA-Public Use
  Company Number: US-PFIZER INC-202300100637

PATIENT
  Age: 47 Year
  Sex: Female

DRUGS (1)
  1. METHOTREXATE SODIUM [Suspect]
     Active Substance: METHOTREXATE SODIUM
     Indication: Rheumatoid arthritis
     Dosage: 25 MG/ML, WEEKLY
     Route: 058

REACTIONS (8)
  - Pulmonary embolism [Unknown]
  - Pulmonary oedema [Unknown]
  - Peripheral arterial occlusive disease [Unknown]
  - Pneumonia [Unknown]
  - Pulmonary hypertension [Unknown]
  - Right atrial enlargement [Unknown]
  - Right ventricular enlargement [Unknown]
  - Hepatomegaly [Unknown]

NARRATIVE: CASE EVENT DATE: 20191120
